FAERS Safety Report 8422793-9 (Version None)
Quarter: 2012Q2

REPORT INFORMATION
  Report Type: 
  Country: None (occurrence: None)
  Receive Date: 20120608
  Receipt Date: 20120601
  Transmission Date: 20120825
  Serious: Yes (Other)
  Sender: FDA-Public Use
  Company Number: GB-MERCK-1206USA00238

PATIENT
  Age: 82 Year
  Sex: Male

DRUGS (11)
  1. FLUCONAZOLE [Concomitant]
     Indication: PROPHYLAXIS
     Route: 065
  2. ALLOPURINOL [Concomitant]
     Indication: PROPHYLAXIS
     Route: 065
  3. ENOXAPARIN SODIUM [Concomitant]
     Indication: PROPHYLAXIS
     Route: 058
  4. CIPROFLOXACIN HCL [Concomitant]
     Indication: PROPHYLAXIS
     Route: 065
  5. ACYCLOVIR [Concomitant]
     Indication: PROPHYLAXIS
     Route: 065
  6. ASPIRIN [Concomitant]
     Route: 065
  7. BENDAMUSTINE HYDROCHLORIDE [Suspect]
     Indication: CHRONIC LYMPHOCYTIC LEUKAEMIA
     Route: 065
  8. OMEPRAZOLE [Concomitant]
     Indication: PROPHYLAXIS
     Route: 065
  9. RAMIPRIL [Concomitant]
     Route: 065
  10. DECADRON [Suspect]
     Indication: CHRONIC LYMPHOCYTIC LEUKAEMIA
     Route: 065
  11. SIMVASTATIN [Concomitant]
     Route: 065

REACTIONS (4)
  - BODY TEMPERATURE DECREASED [None]
  - MALAISE [None]
  - CHILLS [None]
  - FLUSHING [None]
